FAERS Safety Report 6774026-7 (Version None)
Quarter: 2010Q2

REPORT INFORMATION
  Report Type: 
  Country: None (occurrence: None)
  Receive Date: 20100616
  Receipt Date: 20100616
  Transmission Date: 20101027
  Serious: No
  Sender: FDA-Public Use
  Company Number: None

PATIENT
  Age: 61 Year
  Sex: Male
  Weight: 85.2762 kg

DRUGS (1)
  1. PREVACID [Suspect]

REACTIONS (4)
  - FALL [None]
  - RADIUS FRACTURE [None]
  - ULNA FRACTURE [None]
  - WRIST FRACTURE [None]
